FAERS Safety Report 6527107-7 (Version None)
Quarter: 2009Q4

REPORT INFORMATION
  Report Type: 
  Country: None (occurrence: None)
  Receive Date: 20091222
  Receipt Date: 20091020
  Transmission Date: 20100525
  Serious: No
  Sender: FDA-Public Use
  Company Number: ALL1-2009-03287

PATIENT
  Age: 18 Year
  Sex: Male

DRUGS (1)
  1. VYVANSE [Suspect]
     Indication: DRUG USE FOR UNKNOWN INDICATION
     Dosage: 60 MG, 1X/DAY:QD, ORAL
     Route: 048
     Dates: start: 20090401

REACTIONS (1)
  - TINNITUS [None]
